FAERS Safety Report 17551960 (Version 2)
Quarter: 2020Q2

REPORT INFORMATION
  Report Type: Report from Study
  Country: US (occurrence: US)
  Receive Date: 20200317
  Receipt Date: 20200422
  Transmission Date: 20200713
  Serious: No
  Sender: FDA-Public Use
  Company Number: NVSC2020US077009

PATIENT
  Sex: Male

DRUGS (1)
  1. COSENTYX [Suspect]
     Active Substance: SECUKINUMAB
     Indication: PSORIASIS
     Dosage: 300 MG, QW
     Route: 058
     Dates: start: 20200311

REACTIONS (5)
  - Asthenia [Unknown]
  - Chest pain [Unknown]
  - Panic attack [Unknown]
  - Dyspnoea [Unknown]
  - Arthralgia [Unknown]
